FAERS Safety Report 11129497 (Version 2)
Quarter: 2015Q2

REPORT INFORMATION
  Report Type: Report from Study
  Country: US (occurrence: US)
  Receive Date: 20150521
  Receipt Date: 20150522
  Transmission Date: 20150821
  Serious: No
  Sender: FDA-Public Use
  Company Number: US-ASTRAZENECA-2014SE97262

PATIENT
  Age: 50 Year
  Sex: Female
  Weight: 68.5 kg

DRUGS (18)
  1. TOPROL XL [Suspect]
     Active Substance: METOPROLOL SUCCINATE
     Indication: HYPERTENSION
     Route: 048
     Dates: start: 2001
  2. TOPROL XL [Suspect]
     Active Substance: METOPROLOL SUCCINATE
     Indication: THYROID DISORDER
     Dosage: GENERIC
     Route: 048
  3. TOPROL XL [Suspect]
     Active Substance: METOPROLOL SUCCINATE
     Indication: BLOOD PRESSURE ABNORMAL
     Route: 048
     Dates: start: 2001
  4. TOPROL XL [Suspect]
     Active Substance: METOPROLOL SUCCINATE
     Indication: BLOOD PRESSURE ABNORMAL
     Dosage: GENERIC
     Route: 048
  5. TOPROL XL [Suspect]
     Active Substance: METOPROLOL SUCCINATE
     Indication: THYROID DISORDER
     Dosage: 100 MG DAILY
     Route: 048
  6. TOPROL XL [Suspect]
     Active Substance: METOPROLOL SUCCINATE
     Indication: PALPITATIONS
     Route: 048
     Dates: start: 2001
  7. TOPROL XL [Suspect]
     Active Substance: METOPROLOL SUCCINATE
     Indication: HYPERTENSION
     Route: 048
  8. TOPROL XL [Suspect]
     Active Substance: METOPROLOL SUCCINATE
     Indication: PALPITATIONS
     Dosage: GENERIC
     Route: 048
  9. TOPROL XL [Suspect]
     Active Substance: METOPROLOL SUCCINATE
     Indication: HYPERTENSION
     Dosage: GENERIC
     Route: 048
  10. EXFORGE [Concomitant]
     Active Substance: AMLODIPINE BESYLATE\VALSARTAN
     Indication: BLOOD PRESSURE ABNORMAL
     Route: 048
  11. TOPROL XL [Suspect]
     Active Substance: METOPROLOL SUCCINATE
     Indication: PALPITATIONS
     Dosage: 100 MG DAILY
     Route: 048
  12. TOPROL XL [Suspect]
     Active Substance: METOPROLOL SUCCINATE
     Indication: THYROID DISORDER
     Route: 048
     Dates: start: 2001
  13. TOPROL XL [Suspect]
     Active Substance: METOPROLOL SUCCINATE
     Indication: BLOOD PRESSURE ABNORMAL
     Dosage: 100 MG DAILY
     Route: 048
  14. TOPROL XL [Suspect]
     Active Substance: METOPROLOL SUCCINATE
     Indication: HYPERTENSION
     Dosage: 100 MG DAILY
     Route: 048
  15. TOPROL XL [Suspect]
     Active Substance: METOPROLOL SUCCINATE
     Indication: PALPITATIONS
     Route: 048
  16. TOPROL XL [Suspect]
     Active Substance: METOPROLOL SUCCINATE
     Indication: THYROID DISORDER
     Route: 048
  17. TOPROL XL [Suspect]
     Active Substance: METOPROLOL SUCCINATE
     Indication: BLOOD PRESSURE ABNORMAL
     Route: 048
  18. METHIMAZOLE. [Concomitant]
     Active Substance: METHIMAZOLE
     Indication: THYROID DISORDER
     Route: 048
     Dates: start: 201407

REACTIONS (4)
  - Palpitations [Unknown]
  - Therapeutic response unexpected [Unknown]
  - Drug ineffective for unapproved indication [Unknown]
  - Intentional product misuse [Unknown]

NARRATIVE: CASE EVENT DATE: 2001
